FAERS Safety Report 14546409 (Version 2)
Quarter: 2018Q2

REPORT INFORMATION
  Report Type: Spontaneous
  Country: FR (occurrence: FR)
  Receive Date: 20180219
  Receipt Date: 20180501
  Transmission Date: 20180711
  Serious: Yes (Death, Other)
  Sender: FDA-Public Use
  Company Number: FR-009507513-1802FRA006432

PATIENT
  Age: 67 Year
  Sex: Female
  Weight: 52.4 kg

DRUGS (1)
  1. KEYTRUDA [Suspect]
     Active Substance: PEMBROLIZUMAB
     Indication: SQUAMOUS CELL CARCINOMA OF LUNG
     Dosage: CYCLICAL
     Route: 042
     Dates: start: 20180112, end: 20180112

REACTIONS (2)
  - Myocarditis [Fatal]
  - Ventricular extrasystoles [Fatal]

NARRATIVE: CASE EVENT DATE: 20180122
